FAERS Safety Report 10247241 (Version 3)
Quarter: 2014Q3

REPORT INFORMATION
  Report Type: Spontaneous
  Country: US (occurrence: US)
  Receive Date: 20140619
  Receipt Date: 20140730
  Transmission Date: 20150326
  Serious: Yes (Death, Hospitalization, Other)
  Sender: FDA-Public Use
  Company Number: US-009507513-1406USA008443

PATIENT
  Sex: Male
  Weight: 96.6 kg

DRUGS (3)
  1. JANUVIA [Suspect]
     Active Substance: SITAGLIPTIN PHOSPHATE
     Indication: TYPE 2 DIABETES MELLITUS
     Dosage: 100 MG, QD
     Route: 048
     Dates: start: 20070511, end: 20070806
  2. JANUMET [Suspect]
     Active Substance: METFORMIN HYDROCHLORIDE\SITAGLIPTIN PHOSPHATE
     Dosage: 50/1000MG, BID
     Route: 048
     Dates: start: 20071212, end: 20120618
  3. JANUMET [Suspect]
     Active Substance: METFORMIN HYDROCHLORIDE\SITAGLIPTIN PHOSPHATE
     Indication: TYPE 2 DIABETES MELLITUS
     Dosage: 50/500MG, BID
     Route: 048
     Dates: start: 20070807, end: 20071212

REACTIONS (47)
  - Metastases to lymph nodes [Unknown]
  - Metastatic neoplasm [Unknown]
  - Orchidectomy [Unknown]
  - Spinal osteoarthritis [Unknown]
  - Nephrolithiasis [Unknown]
  - Pulmonary mass [Unknown]
  - Varicose veins of abdominal wall [Unknown]
  - Dyspepsia [Unknown]
  - Incarcerated inguinal hernia [Unknown]
  - Lymphadenopathy [Unknown]
  - Pulmonary fibrosis [Unknown]
  - Cholelithiasis [Unknown]
  - Atelectasis [Unknown]
  - Renal cyst [Unknown]
  - Aortic arteriosclerosis [Unknown]
  - Splenomegaly [Unknown]
  - Ileus [Unknown]
  - Blood pressure increased [Unknown]
  - Pancreatic carcinoma metastatic [Fatal]
  - Drug ineffective [Unknown]
  - Constipation [Unknown]
  - Asthma [Unknown]
  - Hypercholesterolaemia [Unknown]
  - Fluid overload [Unknown]
  - Hepatic steatosis [Unknown]
  - Dermal cyst [Unknown]
  - Calculus bladder [Unknown]
  - Lipoma [Unknown]
  - Lipoma excision [Unknown]
  - Thrombocytosis [Unknown]
  - Large intestinal polypectomy [Unknown]
  - Diverticulum intestinal [Unknown]
  - Anxiety [Unknown]
  - Gastrooesophageal reflux disease [Unknown]
  - Abdominal cavity drainage [Unknown]
  - Malignant ascites [Unknown]
  - Metastases to liver [Unknown]
  - Metastasis [Unknown]
  - Inguinal hernia repair [Unknown]
  - Splenic vein thrombosis [Unknown]
  - Pain [Unknown]
  - Prostate cancer stage III [Recovered/Resolved]
  - Radical prostatectomy [Unknown]
  - Large intestine polyp [Unknown]
  - Skin cyst excision [Unknown]
  - Oedema peripheral [Recovering/Resolving]
  - Rash pruritic [Unknown]

NARRATIVE: CASE EVENT DATE: 2008
